FAERS Safety Report 4568025-3 (Version None)
Quarter: 2005Q1

REPORT INFORMATION
  Report Type: 
  Country: None (occurrence: None)
  Receive Date: 20050128
  Receipt Date: 20050113
  Transmission Date: 20050727
  Serious: Yes (Death)
  Sender: FDA-Public Use
  Company Number: A01200500206

PATIENT
  Age: 42 Year
  Sex: Male

DRUGS (7)
  1. PLAVIX [Suspect]
     Indication: ANGINA UNSTABLE
     Dosage: 75 MG OD ORAL
     Route: 048
     Dates: start: 20040712
  2. ACETYLSALICYLIC ACID [Concomitant]
  3. METOPROLOL [Concomitant]
  4. PERINDOPRIL [Concomitant]
  5. FUROSEMIDE [Concomitant]
  6. SPIRONOLACTONE [Concomitant]
  7. DIGOXIN [Concomitant]

REACTIONS (1)
  - SUDDEN DEATH [None]
